FAERS Safety Report 17531829 (Version 2)
Quarter: 2020Q2

REPORT INFORMATION
  Report Type: Spontaneous
  Country: DE (occurrence: DE)
  Receive Date: 20200312
  Receipt Date: 20200403
  Transmission Date: 20200713
  Serious: No
  Sender: FDA-Public Use
  Company Number: DE-TEVA-2020-DE-1197720

PATIENT
  Age: 50 Year
  Sex: Female

DRUGS (2)
  1. DIAZEPAM-RATIOPHARM 10 MG/ML TROPFEN [Suspect]
     Active Substance: DIAZEPAM
     Dosage: INTAKE AT LEAST SINCE THE BEGINNING OF --2019
     Route: 065
     Dates: start: 2019
  2. PREDNISOLON [Concomitant]
     Active Substance: PREDNISOLONE
     Dosage: MAH UNKNOWN

REACTIONS (1)
  - Suspected product tampering [Unknown]
